FAERS Safety Report 12681464 (Version 1)
Quarter: 2016Q3

REPORT INFORMATION
  Report Type: Spontaneous
  Country: US (occurrence: US)
  Receive Date: 20160824
  Receipt Date: 20160824
  Transmission Date: 20161109
  Serious: No
  Sender: FDA-Public Use
  Company Number: US-FRI-1000080578

PATIENT
  Age: 29 Year
  Sex: Female

DRUGS (5)
  1. ENTOCORT [Concomitant]
     Active Substance: BUDESONIDE
  2. VITAMIN B12 [Concomitant]
     Active Substance: CYANOCOBALAMIN
  3. LEXAPRO [Suspect]
     Active Substance: ESCITALOPRAM OXALATE
  4. CIMZIA [Concomitant]
     Active Substance: CERTOLIZUMAB PEGOL
  5. IMURAN [Concomitant]
     Active Substance: AZATHIOPRINE

REACTIONS (4)
  - Pregnancy [Not Recovered/Not Resolved]
  - Feeling abnormal [Not Recovered/Not Resolved]
  - Intentional product misuse [Recovered/Resolved]
  - Abdominal pain upper [Unknown]

NARRATIVE: CASE EVENT DATE: 2015
